FAERS Safety Report 7178935-9 (Version None)
Quarter: 2010Q4

REPORT INFORMATION
  Report Type: 
  Country: None (occurrence: None)
  Receive Date: 20101221
  Receipt Date: 20101209
  Transmission Date: 20110411
  Serious: Yes (Hospitalization)
  Sender: FDA-Public Use
  Company Number: JP-PFIZER INC-2010174678

PATIENT
  Age: 44 Year
  Sex: Male

DRUGS (9)
  1. AMLODIPINE [Suspect]
     Dosage: 5 MG, UNK
     Route: 048
  2. BIPERIDEN HYDROCHLORIDE [Suspect]
     Dosage: 1 MG, UNK
     Route: 048
  3. CLONAZEPAM [Suspect]
     Dosage: 1 MG, UNK
     Route: 048
  4. PERICIAZINE [Suspect]
     Dosage: 10 MG, UNK
     Route: 048
  5. VEGETAMIN B [Suspect]
     Dosage: 1 DF, UNK
     Route: 048
  6. FAMOTIDINE [Suspect]
     Dosage: 40 MG, UNK
     Route: 048
  7. CARBAMAZEPINE [Suspect]
     Dosage: 400 MG, UNK
     Route: 048
  8. MIANSERIN HYDROCHLORIDE [Suspect]
     Dosage: 30 MG, UNK
     Route: 048
  9. FLUNITRAZEPAM [Concomitant]
     Dosage: 2 MG, 1X/DAY
     Route: 048

REACTIONS (3)
  - DELIRIUM [None]
  - RESTLESS LEGS SYNDROME [None]
  - SLEEP-RELATED EATING DISORDER [None]
